FAERS Safety Report 5688324-1 (Version None)
Quarter: 2008Q1

REPORT INFORMATION
  Report Type: 
  Country: None (occurrence: None)
  Receive Date: 20080328
  Receipt Date: 20080328
  Transmission Date: 20080703
  Serious: Yes (Other)
  Sender: FDA-Public Use
  Company Number: None

PATIENT
  Sex: Female
  Weight: 17.2367 kg

DRUGS (1)
  1. SINGULAIR [Suspect]
     Indication: HYPERSENSITIVITY
     Dosage: 1 TABLET DAILY PO
     Route: 048
     Dates: start: 20070801, end: 20080207

REACTIONS (5)
  - AGGRESSION [None]
  - DECREASED APPETITE [None]
  - FATIGUE [None]
  - SLEEP DISORDER [None]
  - SLEEP TERROR [None]
